FAERS Safety Report 8198074-8 (Version None)
Quarter: 2012Q1

REPORT INFORMATION
  Report Type: 
  Country: None (occurrence: None)
  Receive Date: 20120309
  Receipt Date: 20120215
  Transmission Date: 20120608
  Serious: Yes (Other)
  Sender: FDA-Public Use
  Company Number: US-AMGEN-USASP2012010143

PATIENT
  Sex: Female

DRUGS (2)
  1. XGEVA [Suspect]
     Indication: PROPHYLAXIS
  2. CALCIUM SUPPLEMENT [Concomitant]
     Indication: HYPOCALCAEMIA

REACTIONS (1)
  - HYPOCALCAEMIA [None]
